FAERS Safety Report 12116237 (Version 2)
Quarter: 2016Q1

REPORT INFORMATION
  Report Type: Report from Study
  Country: PL (occurrence: PL)
  Receive Date: 20160225
  Receipt Date: 20160225
  Transmission Date: 20160526
  Serious: Yes (Death)
  Sender: FDA-Public Use
  Company Number: PL-SANOFI-AVENTIS-2012SA019895

PATIENT
  Age: 50 Year
  Sex: Male
  Weight: 68 kg

DRUGS (7)
  1. TRAMAL [Concomitant]
     Active Substance: TRAMADOL
     Indication: MULTIPLE SCLEROSIS
     Route: 048
     Dates: start: 20111012
  2. TERIFLUNOMIDE [Suspect]
     Active Substance: TERIFLUNOMIDE
     Indication: MULTIPLE SCLEROSIS
     Route: 048
     Dates: start: 20080507, end: 20120316
  3. GABAPENTIN. [Concomitant]
     Active Substance: GABAPENTIN
     Indication: MULTIPLE SCLEROSIS
     Route: 048
     Dates: start: 20090407
  4. RAMIPRIL. [Concomitant]
     Active Substance: RAMIPRIL
     Indication: MULTIPLE SCLEROSIS
     Dates: start: 20111019
  5. AMIZEPIN [Concomitant]
     Active Substance: CARBAMAZEPINE
     Indication: MULTIPLE SCLEROSIS
     Route: 048
     Dates: start: 20111022
  6. CEFUROXIME. [Concomitant]
     Active Substance: CEFUROXIME
     Indication: HYPERTENSION
     Route: 048
     Dates: start: 20111019, end: 20120315
  7. DITROPAN [Concomitant]
     Active Substance: OXYBUTYNIN CHLORIDE
     Dates: start: 20071105

REACTIONS (1)
  - Death [Fatal]

NARRATIVE: CASE EVENT DATE: 20120316
